FAERS Safety Report 12183835 (Version 1)
Quarter: 2016Q1

REPORT INFORMATION
  Report Type: Spontaneous
  Country: NL (occurrence: NL)
  Receive Date: 20160316
  Receipt Date: 20160316
  Transmission Date: 20160526
  Serious: Yes (Hospitalization)
  Sender: FDA-Public Use
  Company Number: NL-009507513-1603NLD007126

PATIENT
  Sex: Female

DRUGS (10)
  1. PROPRANOLOL HYDROCHLORIDE. [Suspect]
     Active Substance: PROPRANOLOL HYDROCHLORIDE
     Dosage: 2 TIMES PER DAY 2 PIECE(S)
     Route: 048
     Dates: start: 201507
  2. MOMETASONE FUROATE. [Suspect]
     Active Substance: MOMETASONE FUROATE
     Dosage: 3 TIMES PER DAY 2 PIECE(S)
     Route: 045
     Dates: start: 201507
  3. PREDNISOLONE. [Suspect]
     Active Substance: PREDNISOLONE
     Dosage: ONCE DAILY 1 PIECE(S)
     Route: 048
     Dates: start: 201507
  4. COTRIMOXAZOL RICHET [Suspect]
     Active Substance: SULFAMETHOXAZOLE\TRIMETHOPRIM
     Dosage: SELF MADE
     Route: 048
     Dates: start: 201507
  5. PROGRAFT [Suspect]
     Active Substance: TACROLIMUS
     Dosage: 2 TIMES PER DAY 1.5 PIECE (S)
     Route: 048
     Dates: start: 201507
  6. VITAMIN E [Suspect]
     Active Substance: .ALPHA.-TOCOPHEROL
     Indication: CYSTIC FIBROSIS
     Dosage: ONCE DAILY 4 PIECE(S)
     Route: 048
     Dates: start: 201507
  7. URSOCHOLIC ACID [Suspect]
     Active Substance: URSOCHOLIC ACID
     Dosage: 2 TIMES PER DAY 1 PIECE(S)
     Route: 048
     Dates: start: 201507
  8. AZATHIOPRINE. [Suspect]
     Active Substance: AZATHIOPRINE
     Dosage: 1 TIME PER DAY 1 PIECE (S)
     Route: 048
     Dates: start: 201507
  9. OMEPRAZOLE. [Suspect]
     Active Substance: OMEPRAZOLE
     Dosage: ONCE DAILY 1 PIECE(S)
     Route: 048
     Dates: start: 201507
  10. PANCREASE (PANCREATIN) [Suspect]
     Active Substance: PANCRELIPASE
     Dosage: SELF MADE
     Route: 048
     Dates: start: 201507

REACTIONS (3)
  - Caesarean section [Unknown]
  - Maternal exposure timing unspecified [Recovered/Resolved]
  - Premature delivery [Unknown]
